FAERS Safety Report 24561370 (Version 2)
Quarter: 2024Q4

REPORT INFORMATION
  Report Type: Spontaneous
  Country: US (occurrence: US)
  Receive Date: 20241029
  Receipt Date: 20241210
  Transmission Date: 20250115
  Serious: Yes (Other)
  Sender: PFIZER
  Company Number: US-PFIZER INC-PV202400002422

PATIENT
  Age: 74 Year
  Sex: Female
  Weight: 92.99 kg

DRUGS (5)
  1. IBRANCE [Suspect]
     Active Substance: PALBOCICLIB
     Indication: Breast cancer metastatic
     Dosage: 125 MG, 1X/DAY (28-DAY SUPPLY)
     Route: 048
     Dates: start: 20230423
  2. IBRANCE [Suspect]
     Active Substance: PALBOCICLIB
     Dosage: 100MG, ON FOR 3 WEEKS AND OFF 1 WEEK, THEN STARTS AGAIN
     Route: 048
     Dates: end: 20241008
  3. LETROZOLE [Concomitant]
     Active Substance: LETROZOLE
     Indication: Bone cancer
     Dosage: 2.5MG, TABLET, ONE TABLET A DAY, BY MOUTH
     Route: 048
     Dates: start: 20230325
  4. LETROZOLE [Concomitant]
     Active Substance: LETROZOLE
     Dosage: 2.5 MG, DAILY
     Dates: start: 20230423
  5. ZOMETA [Concomitant]
     Active Substance: ZOLEDRONIC ACID
     Indication: Metastases to bone
     Dosage: EVERY 3 MONTHS, IV MEDICATION
     Route: 042
     Dates: start: 20230823

REACTIONS (3)
  - Neutropenia [Recovered/Resolved]
  - Off label use [Unknown]
  - Product dispensing error [Unknown]

NARRATIVE: CASE EVENT DATE: 20240201
